FAERS Safety Report 25412347 (Version 1)
Quarter: 2025Q2

REPORT INFORMATION
  Report Type: Spontaneous
  Country: US (occurrence: None)
  Receive Date: 20250606
  Receipt Date: 20250606
  Transmission Date: 20250716
  Serious: Yes (Other)
  Sender: FDA-CTU
  Company Number: None

PATIENT
  Age: 77 Year
  Sex: Male

DRUGS (15)
  1. ADEMPAS [Suspect]
     Active Substance: RIOCIGUAT
     Indication: Pulmonary arterial hypertension
     Dosage: FREQUENCY : 3 TIMES A DAY;?
     Route: 048
     Dates: start: 20220829
  2. ROSUVASTATIN [Concomitant]
     Active Substance: ROSUVASTATIN
  3. HUMULIN R [Concomitant]
     Active Substance: INSULIN HUMAN
  4. INSULIN GLARGINE [Concomitant]
     Active Substance: INSULIN GLARGINE
  5. ALBUTEROL SULFATE [Concomitant]
     Active Substance: ALBUTEROL SULFATE
  6. MUPIROCIN [Concomitant]
     Active Substance: MUPIROCIN
  7. TORSEMIDE [Concomitant]
     Active Substance: TORSEMIDE
  8. SPIRONOLACTONE [Concomitant]
     Active Substance: SPIRONOLACTONE
  9. RIVAROXABAN [Concomitant]
     Active Substance: RIVAROXABAN
  10. LOSARTAN [Concomitant]
     Active Substance: LOSARTAN
  11. GLIPIZIDE [Concomitant]
     Active Substance: GLIPIZIDE
  12. timolol opht drop [Concomitant]
  13. potassoum chloride [Concomitant]
  14. FAMOTIDINE [Concomitant]
     Active Substance: FAMOTIDINE
  15. VITAMIN D3 [Concomitant]
     Active Substance: CHOLECALCIFEROL

REACTIONS (2)
  - Infected dermal cyst [None]
  - Abscess [None]

NARRATIVE: CASE EVENT DATE: 20250410
